FAERS Safety Report 24189260 (Version 2)
Quarter: 2024Q3

REPORT INFORMATION
  Report Type: Report from Study
  Country: US (occurrence: US)
  Receive Date: 20240808
  Receipt Date: 20240819
  Transmission Date: 20241017
  Serious: Yes (Hospitalization, Other)
  Sender: GILEAD
  Company Number: US-GILEAD-2024-0683261

PATIENT
  Sex: Female

DRUGS (12)
  1. AZTREONAM LYSINE [Suspect]
     Active Substance: AZTREONAM LYSINE
     Indication: Chronic obstructive pulmonary disease
     Dosage: 75 MG, TID VIA ALTERA NEBULIZER, 28 DAYS ON 28 DAYS OFF
     Route: 055
  2. ALPRAZOLAM [Concomitant]
     Active Substance: ALPRAZOLAM
  3. LEVOFLOXACIN [Concomitant]
     Active Substance: LEVOFLOXACIN
  4. LEVOTHYROXINE [Concomitant]
     Active Substance: LEVOTHYROXINE\LEVOTHYROXINE SODIUM
  5. PRAVASTATIN [Concomitant]
     Active Substance: PRAVASTATIN
  6. ERYTHROMYCIN [Concomitant]
     Active Substance: ERYTHROMYCIN
  7. DOXEPIN [Concomitant]
     Active Substance: DOXEPIN
  8. ALBUTEROL [Concomitant]
     Active Substance: ALBUTEROL
  9. MAGNESIUM [Concomitant]
     Active Substance: MAGNESIUM
  10. IPRATROPIUM BROMIDE [Concomitant]
     Active Substance: IPRATROPIUM BROMIDE\IPRATROPIUM BROMIDE ANHYDROUS
  11. POTASSIUM CHLORIDE [Concomitant]
     Active Substance: POTASSIUM CHLORIDE
  12. TOBRAMYCIN SULFATE [Concomitant]
     Active Substance: TOBRAMYCIN SULFATE
     Indication: Chronic obstructive pulmonary disease
     Dosage: 300 MG, BID CYCLING FOR 28 DAYS ON AND 28 DAYS OFF. USE WITH PARI CUPS. ALTERNATING WITH CAYSTON
     Route: 065

REACTIONS (4)
  - Infection [Unknown]
  - Pseudomonas infection [Unknown]
  - Dyspnoea [Unknown]
  - Off label use [Not Recovered/Not Resolved]
